FAERS Safety Report 8953865 (Version 2)
Quarter: 2013Q1

REPORT INFORMATION
  Report Type: Spontaneous
  Country: DE (occurrence: DE)
  Receive Date: 20121206
  Receipt Date: 20130108
  Transmission Date: 20140127
  Serious: Yes (Other)
  Sender: FDA-Public Use
  Company Number: CHPA2012DE024719

PATIENT
  Sex: Female
  Weight: 50 kg

DRUGS (6)
  1. SCOPODERM TTS [Suspect]
     Indication: SALIVARY HYPERSECRETION
     Dosage: UNK, EVERY 3 DAYS
     Route: 062
     Dates: start: 2011
  2. STALEVO [Concomitant]
     Dosage: 7X1 PER DAY
  3. LIORESAL [Concomitant]
     Dosage: 3X1 PER DAY
  4. MOTILIUM ^BYK GULDEN^ [Concomitant]
     Dosage: 3X1 PER DAY
  5. FEVARIN [Concomitant]
     Dosage: 1X1 PER DAY
  6. ADDITIVA VITAMIN E [Concomitant]
     Dosage: 1X1 PER DAY

REACTIONS (4)
  - Application site reaction [Not Recovered/Not Resolved]
  - Application site erythema [Unknown]
  - Application site erosion [Unknown]
  - Off label use [Unknown]
